FAERS Safety Report 4584492-3 (Version None)
Quarter: 2005Q1

REPORT INFORMATION
  Report Type: 
  Country: None (occurrence: None)
  Receive Date: 20050125
  Receipt Date: 20040922
  Transmission Date: 20050727
  Serious: No
  Sender: FDA-Public Use
  Company Number: USA040979015

PATIENT
  Age: 56 Year
  Sex: Female
  Weight: 73 kg

DRUGS (10)
  1. FORTEO [Suspect]
     Indication: DRUG INEFFECTIVE
     Dosage: 20 UG/1 DAY
  2. FORTEO [Suspect]
     Indication: PHARMACEUTICAL PRODUCT COMPLAINT
     Dosage: 20 UG/1 DAY
  3. PROCARDIA (NIFEDIPINE PA) [Concomitant]
  4. PRILOSEC (OMEPRAZOLE RATIOPHARM) [Concomitant]
  5. FOLIC ACID [Concomitant]
  6. ASPIRIN [Concomitant]
  7. SKELAXIN [Concomitant]
  8. PLAQUENIL [Concomitant]
  9. ZOCOR (SIMVASTATIN RATIOPHARM) [Concomitant]
  10. CELEBREX [Concomitant]

REACTIONS (3)
  - AMNESIA [None]
  - INSOMNIA [None]
  - MEMORY IMPAIRMENT [None]
